FAERS Safety Report 5280078-6 (Version None)
Quarter: 2007Q1

REPORT INFORMATION
  Report Type: 
  Country: None (occurrence: None)
  Receive Date: 20070329
  Receipt Date: 20070319
  Transmission Date: 20070707
  Serious: Yes (Other)
  Sender: FDA-Public Use
  Company Number: DE-AMGEN-UK206904

PATIENT
  Sex: Female

DRUGS (4)
  1. ARANESP [Suspect]
     Indication: DRUG USE FOR UNKNOWN INDICATION
     Route: 058
     Dates: start: 20061201, end: 20070101
  2. SANDIMMUNE [Concomitant]
     Route: 065
     Dates: start: 20061201
  3. VORICONAZOLE [Concomitant]
     Route: 048
     Dates: start: 20061101
  4. VALGANCICLOVIR HCL [Concomitant]
     Route: 065
     Dates: start: 20061001

REACTIONS (12)
  - ASTHENIA [None]
  - CIRCULATORY COLLAPSE [None]
  - CONVULSION [None]
  - FATIGUE [None]
  - FEELING ABNORMAL [None]
  - HEADACHE [None]
  - HYPERSENSITIVITY [None]
  - INJECTION SITE PAIN [None]
  - PYREXIA [None]
  - RED BLOOD CELL COUNT DECREASED [None]
  - TREMOR [None]
  - VOMITING [None]
